FAERS Safety Report 5324775-2 (Version None)
Quarter: 2007Q2

REPORT INFORMATION
  Report Type: 
  Country: None (occurrence: None)
  Receive Date: 20070515
  Receipt Date: 20070507
  Transmission Date: 20071010
  Serious: Yes (Life-Threatening, Hospitalization, Other)
  Sender: FDA-Public Use
  Company Number: PHEH2007US03916

PATIENT
  Age: 59 Year
  Sex: Female
  Weight: 97.505 kg

DRUGS (10)
  1. ZELNORM [Suspect]
     Indication: IRRITABLE BOWEL SYNDROME
     Dosage: 6 MG, BID
     Route: 048
     Dates: start: 20020101, end: 20070331
  2. PAROXETINE [Concomitant]
     Dosage: 40 MG, QHS
  3. METOPROLOL SUCCINATE [Concomitant]
     Dosage: 25 MG, BID
  4. BUMETANIDE [Concomitant]
     Dosage: 1 MG, UNK
  5. BENAZEPRIL HYDROCHLORIDE [Concomitant]
     Dosage: 5 MG, UNK
  6. TYLENOL [Concomitant]
  7. PEPCID [Concomitant]
     Dosage: UNK, PRN
  8. PREMARIN /SCH/ [Concomitant]
     Indication: HORMONE REPLACEMENT THERAPY
     Dosage: 0.625 UNK, QD
     Route: 048
  9. ZOLOFT [Concomitant]
     Indication: ANXIETY
     Dosage: 100 UNK, QD
     Route: 048
  10. DICLOFENAC [Concomitant]
     Indication: ARTHRITIS
     Dosage: 75 UNK, BID
     Route: 048
     Dates: start: 20050901, end: 20051001

REACTIONS (5)
  - CORONARY ARTERY DISEASE [None]
  - DIABETES MELLITUS [None]
  - ELECTROCARDIOGRAM ABNORMAL [None]
  - MYOCARDIAL INFARCTION [None]
  - SPINAL FUSION SURGERY [None]
